FAERS Safety Report 9805624 (Version 1)
Quarter: 2014Q1

REPORT INFORMATION
  Report Type: Spontaneous
  Country: US (occurrence: US)
  Receive Date: 20140109
  Receipt Date: 20140109
  Transmission Date: 20141002
  Serious: No
  Sender: FDA-Public Use
  Company Number: US-009507513-1401USA002113

PATIENT
  Sex: 0

DRUGS (1)
  1. PROVENTIL [Suspect]
     Route: 055

REACTIONS (3)
  - Drug dose omission [Unknown]
  - Incorrect product storage [Unknown]
  - No adverse event [Unknown]
